FAERS Safety Report 20018799 (Version 1)
Quarter: 2021Q4

REPORT INFORMATION
  Report Type: Spontaneous
  Country: US (occurrence: US)
  Receive Date: 20211101
  Receipt Date: 20211101
  Transmission Date: 20220303
  Serious: No
  Sender: FDA-Public Use
  Company Number: US-AUROBINDO-AUR-APL-2021-038758

PATIENT
  Sex: Female

DRUGS (1)
  1. METOPROLOL TARTRATE [Suspect]
     Active Substance: METOPROLOL TARTRATE
     Indication: Blood pressure measurement
     Dosage: 1 DOSAGE FORM, ONCE A DAY
     Route: 048

REACTIONS (2)
  - Malaise [Not Recovered/Not Resolved]
  - Food intolerance [Not Recovered/Not Resolved]
